FAERS Safety Report 10754522 (Version 1)
Quarter: 2015Q1

REPORT INFORMATION
  Report Type: Spontaneous
  Country: US (occurrence: None)
  Receive Date: 20150130
  Receipt Date: 20150130
  Transmission Date: 20150721
  Serious: Yes (Life-Threatening, Hospitalization)
  Sender: FDA-Public Use
  Company Number: None

PATIENT
  Age: 83 Year
  Sex: Female
  Weight: 84 kg

DRUGS (24)
  1. AMIODARONE (CORDARONE) [Concomitant]
  2. PRAVASTATIN (PRAVACHOL) [Concomitant]
  3. MAGNESIUM OXIDE (MAG-OX) [Concomitant]
  4. CALCIUM CARBONATE. [Concomitant]
     Active Substance: CALCIUM CARBONATE
  5. CLONIDINE (CATAPRES-TTS 2) [Concomitant]
  6. BRINOMIDINE TARTRATE-TIMOLOL [Concomitant]
  7. FERROUS SULFATE [Concomitant]
     Active Substance: FERROUS SULFATE\FERROUS SULFATE, DRIED
  8. AMIODARONE, 200 MG, SANDOZ [Suspect]
     Active Substance: AMIODARONE
     Indication: ATRIAL FIBRILLATION
     Route: 048
  9. FLUTICASONE-SALMETEROL (ADVAIR) [Concomitant]
  10. MAGNESIUM HYDROXIDE (MILK OF MAGNESIUM) [Concomitant]
  11. LEVOTHYROXINE (SYNTHROID, LEVOTHROID) [Concomitant]
  12. TYLENOL [Concomitant]
     Active Substance: ACETAMINOPHEN
  13. TRAVOPROST [Concomitant]
     Active Substance: TRAVOPROST
  14. GLIPIZIDE (GLUCOTROL) [Concomitant]
  15. ATENOLOL (TENORMIN) [Concomitant]
  16. ASPIRIN. [Concomitant]
     Active Substance: ASPIRIN
  17. LACTOBACILLUS ACIDOPHILUS (BACID) [Concomitant]
  18. GUAIFENESIN (ROBITUSSIN) [Concomitant]
  19. ATENOLOL. [Suspect]
     Active Substance: ATENOLOL
     Indication: ATRIAL FIBRILLATION
     Dosage: 25 MG, 1 TAB, QD, ORAL
     Route: 048
  20. BENZALKONIUM [Concomitant]
     Active Substance: BENZALKONIUM
  21. TRAVATAN  OPHTHALMIC SOLUTION [Concomitant]
  22. ISOSORBIDE MONONITRATE. [Concomitant]
     Active Substance: ISOSORBIDE MONONITRATE
  23. ALLOPURINOL (ZYLOPRIM) [Concomitant]
  24. SEROQUEL [Concomitant]
     Active Substance: QUETIAPINE FUMARATE

REACTIONS (6)
  - Unresponsive to stimuli [None]
  - Syncope [None]
  - Sinus arrest [None]
  - Bradycardia [None]
  - Rhythm idioventricular [None]
  - Nodal rhythm [None]

NARRATIVE: CASE EVENT DATE: 20140308
